FAERS Safety Report 18383828 (Version 2)
Quarter: 2020Q4

REPORT INFORMATION
  Report Type: Spontaneous
  Country: US (occurrence: US)
  Receive Date: 20201014
  Receipt Date: 20201020
  Transmission Date: 20210114
  Serious: Yes (Death, Other)
  Sender: FDA-Public Use
  Company Number: US-TEVA-2020-US-1838347

PATIENT
  Sex: Male

DRUGS (13)
  1. OXYCODONE IMMEDIATE-RELEASE TABLETS [Suspect]
     Active Substance: OXYCODONE HYDROCHLORIDE
     Dosage: FORM OF ADMIN: IMMEDIATE-RELEASE TABLETS
     Route: 065
  2. TRAMADOL ER [Suspect]
     Active Substance: TRAMADOL HYDROCHLORIDE
     Route: 065
  3. OXYIR [Suspect]
     Active Substance: OXYCODONE HYDROCHLORIDE
     Route: 065
  4. ALPRAZOLAM. [Suspect]
     Active Substance: ALPRAZOLAM
     Route: 065
  5. MIRTAZAPINE. [Suspect]
     Active Substance: MIRTAZAPINE
     Route: 065
  6. OXYFAST [Suspect]
     Active Substance: OXYCODONE
     Route: 065
  7. OXYCONTIN [Suspect]
     Active Substance: OXYCODONE HYDROCHLORIDE
     Route: 065
  8. DIAZEPAM. [Suspect]
     Active Substance: DIAZEPAM
     Route: 065
  9. BUTRANS [Suspect]
     Active Substance: BUPRENORPHINE
     Route: 065
  10. ACETAMINOPHEN W/OXYCODONE [Suspect]
     Active Substance: ACETAMINOPHEN\OXYCODONE HYDROCHLORIDE
     Route: 065
  11. OXYCODONE [Suspect]
     Active Substance: OXYCODONE
     Route: 065
  12. OXYCODONE EXTENDED-RELEASE TABLETS [Suspect]
     Active Substance: OXYCODONE
     Dosage: FORM OF ADMIN: EXTENDED-RELEASE TABLETS
     Route: 065
  13. BUPRENORPHINE TRANSDERMAL SYSTEM [Suspect]
     Active Substance: BUPRENORPHINE
     Route: 062

REACTIONS (5)
  - Loss of employment [Unknown]
  - Dependence [Unknown]
  - Substance use disorder [Unknown]
  - Accidental overdose [Fatal]
  - Poisoning [Unknown]
